FAERS Safety Report 5225152-5 (Version None)
Quarter: 2007Q1

REPORT INFORMATION
  Report Type: 
  Country: None (occurrence: None)
  Receive Date: 20070131
  Receipt Date: 20061012
  Transmission Date: 20070707
  Serious: Yes (Hospitalization, Other)
  Sender: FDA-Public Use
  Company Number: US-PFIZER INC-2006109057

PATIENT
  Age: 29 Year
  Sex: Male
  Weight: 36.3 kg

DRUGS (4)
  1. VFEND [Suspect]
     Indication: BRONCHOPULMONARY ASPERGILLOSIS
     Route: 042
     Dates: start: 20060801, end: 20060101
  2. ERAXIS [Suspect]
     Indication: BRONCHOPULMONARY ASPERGILLOSIS
  3. TPN [Concomitant]
     Route: 051
  4. REMODULIN [Concomitant]

REACTIONS (3)
  - BLOOD CREATININE INCREASED [None]
  - BLOOD UREA INCREASED [None]
  - DEHYDRATION [None]
